FAERS Safety Report 6018496-0 (Version None)
Quarter: 2008Q4

REPORT INFORMATION
  Report Type: 
  Country: None (occurrence: None)
  Receive Date: 20081219
  Receipt Date: 20080318
  Transmission Date: 20090506
  Serious: Yes (Other)
  Sender: FDA-Public Use
  Company Number: US200803004222

PATIENT
  Sex: Female

DRUGS (1)
  1. HUMULIN N [Suspect]
     Dosage: 19 U

REACTIONS (1)
  - HYPOGLYCAEMIC SEIZURE [None]
